FAERS Safety Report 8491181-1 (Version None)
Quarter: 2012Q3

REPORT INFORMATION
  Report Type: 
  Country: None (occurrence: None)
  Receive Date: 20120706
  Receipt Date: 20120625
  Transmission Date: 20120928
  Serious: Yes (Hospitalization)
  Sender: FDA-Public Use
  Company Number: CA-JNJFOC-20120612683

PATIENT
  Sex: Male
  Weight: 84 kg

DRUGS (3)
  1. VITAMIN B-12 [Concomitant]
     Route: 065
  2. MORPHINE [Concomitant]
     Route: 065
  3. REMICADE [Suspect]
     Indication: CROHN'S DISEASE
     Route: 042
     Dates: start: 20091103

REACTIONS (1)
  - NEPHROLITHIASIS [None]
